FAERS Safety Report 11195047 (Version 1)
Quarter: 2015Q2

REPORT INFORMATION
  Report Type: Spontaneous
  Country: BR (occurrence: BR)
  Receive Date: 20150617
  Receipt Date: 20150617
  Transmission Date: 20150821
  Serious: Yes (Other)
  Sender: FDA-Public Use
  Company Number: BR-AMGEN-BRACT2012031071

PATIENT
  Age: 53 Year
  Sex: Female
  Weight: 85 kg

DRUGS (37)
  1. PRELONE [Concomitant]
     Active Substance: PREDNISOLONE
     Indication: ARTHRITIS
     Dosage: UNK
  2. PROPANOLOL                         /00030001/ [Concomitant]
     Active Substance: PROPRANOLOL HYDROCHLORIDE
     Indication: HYPERTENSION
     Dosage: UNK
  3. PAROXETINE [Concomitant]
     Active Substance: PAROXETINE\PAROXETINE HYDROCHLORIDE
     Indication: DEPRESSION
     Dosage: STRENGTH 40MG
     Dates: start: 2007
  4. TAMARINE                           /05944101/ [Concomitant]
     Indication: CONSTIPATION
     Dosage: UNK
  5. DEPAKENE [Concomitant]
     Active Substance: VALPROIC ACID
     Dosage: UNK
  6. ENBREL [Suspect]
     Active Substance: ETANERCEPT
     Dosage: 50 MG, WEEKLY
     Route: 058
     Dates: start: 201209
  7. HARPADOL [Concomitant]
     Indication: ARTHRITIS
     Dosage: UNK
  8. FAMOX                              /00706001/ [Concomitant]
     Indication: GASTRITIS
     Dosage: STRENGTH 40 MG, UNK
  9. ZETRON                             /00700502/ [Concomitant]
     Indication: DEPRESSION
     Dosage: STRENGTH 150MG, UNK
     Dates: start: 2007
  10. ZANIDIP [Concomitant]
     Active Substance: LERCANIDIPINE HYDROCHLORIDE
     Indication: BLOOD PRESSURE INCREASED
     Dosage: UNK
  11. ENALAPRIL [Concomitant]
     Active Substance: ENALAPRIL
     Indication: HYPERTENSION
     Dosage: UNK
  12. DIOVAN [Concomitant]
     Active Substance: VALSARTAN
     Indication: BLOOD PRESSURE INCREASED
     Dosage: UNK
  13. APRESOLINE HYDROCHLORIDE [Concomitant]
     Active Substance: HYDRALAZINE HYDROCHLORIDE
     Indication: HYPERTENSION
     Dosage: STRENGTH 50MG, UNK
     Dates: start: 2007
  14. SIMVASTATIN. [Concomitant]
     Active Substance: SIMVASTATIN
     Indication: VEIN DISORDER
     Dosage: UNK
  15. FOLIC ACID. [Concomitant]
     Active Substance: FOLIC ACID
     Indication: ARTHRITIS
     Dosage: UNK
  16. HIDROGEL [Concomitant]
     Indication: VEIN DISORDER
     Dosage: UNK
  17. ZANIDIP [Concomitant]
     Active Substance: LERCANIDIPINE HYDROCHLORIDE
     Indication: HYPERTENSION
     Dosage: STRENGTH 10MG, UNK
     Dates: start: 2010
  18. XALATAN [Concomitant]
     Active Substance: LATANOPROST
     Indication: GLAUCOMA
     Dosage: UNK
     Dates: start: 2007
  19. ENBREL [Suspect]
     Active Substance: ETANERCEPT
     Indication: RHEUMATOID ARTHRITIS
     Dosage: 50 MG, WEEKLY
     Route: 058
     Dates: start: 20081008, end: 201109
  20. CLOPIDOGREL [Concomitant]
     Active Substance: CLOPIDOGREL BISULFATE
     Dosage: UNK
  21. LANSOPRAZOLE. [Concomitant]
     Active Substance: LANSOPRAZOLE
     Dosage: UNK
  22. METHOTREXATE [Concomitant]
     Active Substance: METHOTREXATE
     Indication: ARTHRITIS
     Dosage: UNK
  23. LYRICA [Concomitant]
     Active Substance: PREGABALIN
     Indication: ARTHRITIS
     Dosage: STRENGTH ^150^ (UNSPECIFIED UNIT), UNK
     Dates: start: 2007
  24. HUMECTOL D [Concomitant]
     Indication: CONSTIPATION
     Dosage: UNK
  25. SOMALGIN [Concomitant]
     Active Substance: ASPIRIN\DIHYDROXYALUMINUM AMINOACETATE ANHYDROUS\MAGNESIUM CARBONATE
     Dosage: UNK
  26. APRESOLINE HYDROCHLORIDE [Concomitant]
     Active Substance: HYDRALAZINE HYDROCHLORIDE
     Indication: BLOOD PRESSURE INCREASED
     Dosage: UNK
  27. VENLAFAXINE [Concomitant]
     Active Substance: VENLAFAXINE HYDROCHLORIDE
     Indication: VEIN DISORDER
     Dosage: 75 MG
     Dates: start: 2007
  28. CALTRATE [Concomitant]
     Active Substance: CALCIUM CARBONATE
     Indication: ARTHRITIS
     Dosage: UNK
  29. FAMOTIDINE. [Concomitant]
     Active Substance: FAMOTIDINE
     Indication: GASTRITIS
     Dosage: STRENGTH 40MG, UNK
     Dates: start: 2007
  30. MIOFLEX                            /06780601/ [Concomitant]
     Indication: ARTHRITIS
     Dosage: UNK
  31. CONDROFLEX [Concomitant]
     Active Substance: CHONDROITIN SULFATE (BOVINE)\GLUCOSAMINE SULFATE
     Indication: ARTHRITIS
     Dosage: UNK
  32. DIOVAN [Concomitant]
     Active Substance: VALSARTAN
     Indication: HYPERTENSION
     Dosage: STRENGTH 160MG, UNK
     Dates: start: 2007
  33. VENLAFAXINE [Concomitant]
     Active Substance: VENLAFAXINE HYDROCHLORIDE
     Indication: DEPRESSION
     Dosage: UNK
  34. AZOPT [Concomitant]
     Active Substance: BRINZOLAMIDE
     Indication: GLAUCOMA
     Dosage: UNK
     Dates: start: 2007
  35. PANTOPRAZOLE [Concomitant]
     Active Substance: PANTOPRAZOLE SODIUM
     Indication: GASTRITIS
     Dosage: STRENGTH 40 MG, UNK
     Dates: start: 2007
  36. FLUOXETINE [Concomitant]
     Active Substance: FLUOXETINE\FLUOXETINE HYDROCHLORIDE
     Indication: DEPRESSION
     Dosage: STRENGTH 20MG, UNK
     Dates: start: 2007
  37. HYPERIUM [Concomitant]
     Active Substance: RILMENIDINE PHOSPHATE
     Indication: BLOOD PRESSURE INCREASED
     Dosage: UNK
     Dates: start: 2010

REACTIONS (7)
  - Liver disorder [Unknown]
  - Application site haemorrhage [Unknown]
  - Nephrolithiasis [Unknown]
  - Hepatic steatosis [Unknown]
  - Application site pain [Unknown]
  - Cartilage atrophy [Unknown]
  - Renal disorder [Unknown]

NARRATIVE: CASE EVENT DATE: 2011
